FAERS Safety Report 24320894 (Version 3)
Quarter: 2024Q4

REPORT INFORMATION
  Report Type: Report from Study
  Country: US (occurrence: US)
  Receive Date: 20240915
  Receipt Date: 20241106
  Transmission Date: 20250114
  Serious: Yes (Other)
  Sender: SUNOVION
  Company Number: US-SMPA-2024SPA002441AA

PATIENT

DRUGS (2)
  1. ORGOVYX [Suspect]
     Active Substance: RELUGOLIX
     Indication: Prostate cancer
     Dosage: 360 MG, SINGLE
     Route: 048
     Dates: start: 20240823, end: 20240823
  2. ORGOVYX [Suspect]
     Active Substance: RELUGOLIX
     Dosage: 120 MG, QD
     Route: 048
     Dates: start: 20240824

REACTIONS (8)
  - Arrhythmia [Unknown]
  - Feeling abnormal [Unknown]
  - Pruritus [Unknown]
  - Dizziness [Unknown]
  - Skin irritation [Unknown]
  - Acne [Unknown]
  - Hot flush [Unknown]
  - Fatigue [Unknown]
